FAERS Safety Report 7357384-4 (Version None)
Quarter: 2011Q1

REPORT INFORMATION
  Report Type: 
  Country: None (occurrence: None)
  Receive Date: 20110317
  Receipt Date: 20110317
  Transmission Date: 20110831
  Serious: Yes (Death, Hospitalization)
  Sender: FDA-Public Use
  Company Number: HU-ELI_LILLY_AND_COMPANY-HU201005007663

PATIENT
  Sex: Male
  Weight: 78 kg

DRUGS (9)
  1. PEMETREXED [Suspect]
     Indication: NON-SMALL CELL LUNG CANCER
     Dosage: 900 MG, WEEKLY (1/W)
     Route: 042
     Dates: start: 20100511
  2. OTHER PHARMA COMPANY INV DRUG [Suspect]
     Indication: NON-SMALL CELL LUNG CANCER
     Dosage: 800 MG, 2 IN 3 WEEKS
     Route: 042
     Dates: start: 20100511
  3. EMETRON [Concomitant]
     Indication: PROPHYLAXIS
  4. FOLIC ACID [Concomitant]
     Indication: PROPHYLAXIS
  5. NAVOBAN [Concomitant]
     Indication: PROPHYLAXIS
  6. CISPLATIN [Suspect]
     Indication: NON-SMALL CELL LUNG CANCER
     Dosage: 135 MG, WEEKLY (1/W)
     Route: 042
     Dates: start: 20100511
  7. VITAMIN B-12 [Concomitant]
     Indication: PROPHYLAXIS
  8. MEDROL [Concomitant]
     Indication: PROPHYLAXIS
  9. NEUPOGEN [Concomitant]
     Indication: WHITE BLOOD CELL COUNT DECREASED
     Dates: start: 20100518

REACTIONS (3)
  - NEOPLASM MALIGNANT [None]
  - ASTHENIA [None]
  - DIARRHOEA [None]
